FAERS Safety Report 8985147 (Version 1)
Quarter: 2012Q4

REPORT INFORMATION
  Report Type: 
  Country: US (occurrence: US)
  Receive Date: 20121226
  Receipt Date: 20121226
  Transmission Date: 20130627
  Serious: No
  Sender: FDA-Public Use
  Company Number: US-PFIZER INC-2012327602

PATIENT
  Age: 74 Year
  Sex: Female
  Weight: 112.47 kg

DRUGS (3)
  1. ZOLOFT [Suspect]
     Indication: DEPRESSION
     Dosage: 25 mg, 1x/day
     Route: 048
     Dates: start: 201212, end: 20121222
  2. WARFARIN [Concomitant]
     Indication: COAGULATION FACTOR V LEVEL ABNORMAL
     Dosage: UNK
  3. COMBIVENT [Concomitant]
     Indication: BREATHING DIFFICULT
     Dosage: UNK

REACTIONS (4)
  - Dyspnoea [Recovered/Resolved]
  - Heart rate decreased [Unknown]
  - Stress [Unknown]
  - Anxiety [Unknown]
